FAERS Safety Report 11054885 (Version 1)
Quarter: 2015Q2

REPORT INFORMATION
  Report Type: Spontaneous
  Country: CA (occurrence: None)
  Receive Date: 20150420
  Receipt Date: 20150420
  Transmission Date: 20150821
  Serious: Yes (Hospitalization)
  Sender: FDA-Public Use
  Company Number: FK201501791

PATIENT
  Age: 75 Year
  Sex: Male
  Weight: 91 kg

DRUGS (13)
  1. ALLOPURINOL (ALLOPURINOL) [Concomitant]
     Active Substance: ALLOPURINOL
  2. AMIODARONE HCL [Suspect]
     Active Substance: AMIODARONE HYDROCHLORIDE
     Indication: VENTRICULAR TACHYCARDIA
  3. GABAPENTIN (GABAPENTIN) [Concomitant]
     Active Substance: GABAPENTIN
  4. SPIRONOLACTONE. [Concomitant]
     Active Substance: SPIRONOLACTONE
  5. WARFARIN (WARFARIN) [Concomitant]
     Active Substance: WARFARIN
  6. CYMBALTA (DULOXETINE HYDOCHLORIDE) [Concomitant]
  7. GLYCERYL TRINITRATE [Concomitant]
     Active Substance: NITROGLYCERIN
  8. BISOPROLOL (BISOPROLOL) [Concomitant]
     Active Substance: BISOPROLOL
  9. RAMIPRIL. [Concomitant]
     Active Substance: RAMIPRIL
  10. ASPIRIN. [Concomitant]
     Active Substance: ASPIRIN
  11. ATORVASTATIN CALCIUM (ATORVASTATIN CALCIUM) [Concomitant]
     Active Substance: ATORVASTATIN CALCIUM
  12. FUROSEMIDE. [Concomitant]
     Active Substance: FUROSEMIDE
  13. LANSOPRAZOLE. [Concomitant]
     Active Substance: LANSOPRAZOLE

REACTIONS (4)
  - Presyncope [None]
  - Orthostatic hypertension [None]
  - Interstitial lung disease [None]
  - Acute kidney injury [None]
